FAERS Safety Report 5154547-3 (Version None)
Quarter: 2006Q4

REPORT INFORMATION
  Report Type: 
  Country: None (occurrence: None)
  Receive Date: 20061113
  Receipt Date: 20061027
  Transmission Date: 20070319
  Serious: Yes (Life-Threatening, Other)
  Sender: FDA-Public Use
  Company Number: 062-20785-06101332

PATIENT
  Age: 67 Year
  Sex: Female

DRUGS (3)
  1. THALOMID [Suspect]
     Indication: MULTIPLE MYELOMA
     Dosage: 100 MG, 2 IN 1 D, ORAL
     Route: 048
     Dates: start: 20060911, end: 20061026
  2. AMPHOTERICIN B [Concomitant]
  3. TAVANIC (LEVOFLOXACIN) [Concomitant]

REACTIONS (11)
  - AGRANULOCYTOSIS [None]
  - APHTHOUS STOMATITIS [None]
  - CHILLS [None]
  - DIARRHOEA [None]
  - GASTROINTESTINAL INFECTION [None]
  - HAEMOGLOBIN DECREASED [None]
  - LYMPHADENOPATHY [None]
  - PYREXIA [None]
  - TREMOR [None]
  - VOMITING [None]
  - WEIGHT DECREASED [None]
